FAERS Safety Report 24850930 (Version 3)
Quarter: 2025Q1

REPORT INFORMATION
  Report Type: Spontaneous
  Country: JP (occurrence: JP)
  Receive Date: 20250116
  Receipt Date: 20250224
  Transmission Date: 20250409
  Serious: Yes (Other)
  Sender: RIGEL PHARMACEUTICALS
  Company Number: JP-KISSEI-TL20250016_P_1

PATIENT
  Age: 78 Year
  Sex: Female

DRUGS (4)
  1. TAVALISSE [Suspect]
     Active Substance: FOSTAMATINIB
     Indication: Immune thrombocytopenia
     Dosage: 200 MG, QD
     Route: 048
     Dates: start: 20240514, end: 20240604
  2. TAVALISSE [Suspect]
     Active Substance: FOSTAMATINIB
     Route: 048
     Dates: start: 20240618
  3. PREDNISOLONE [Concomitant]
     Active Substance: PREDNISOLONE
     Indication: Immune thrombocytopenia
     Route: 065
  4. PREDNISOLONE [Concomitant]
     Active Substance: PREDNISOLONE
     Route: 065
     Dates: end: 20240604

REACTIONS (1)
  - Pulmonary embolism [Recovered/Resolved]

NARRATIVE: CASE EVENT DATE: 20240604
